FAERS Safety Report 5894874-5 (Version None)
Quarter: 2008Q3

REPORT INFORMATION
  Report Type: 
  Country: None (occurrence: None)
  Receive Date: 20080924
  Receipt Date: 20080717
  Transmission Date: 20090109
  Serious: Yes (Hospitalization)
  Sender: FDA-Public Use
  Company Number: US-ASTRAZENECA-2008UW14291

PATIENT
  Age: 52 Year
  Sex: Female

DRUGS (4)
  1. SEROQUEL [Suspect]
     Dosage: 50 MG UP TO 150 MG OVER THREE DAYS
     Route: 048
     Dates: start: 20080712, end: 20080715
  2. LEXAPRO [Concomitant]
  3. ATIVAN [Concomitant]
  4. THYROID MEDICATION [Concomitant]

REACTIONS (2)
  - ATRIAL FIBRILLATION [None]
  - HYPERTENSION [None]
